FAERS Safety Report 6839984-0 (Version None)
Quarter: 2010Q3

REPORT INFORMATION
  Report Type: 
  Country: None (occurrence: None)
  Receive Date: 20100714
  Receipt Date: 20100706
  Transmission Date: 20110219
  Serious: Yes (Other)
  Sender: FDA-Public Use
  Company Number: SE-JNJFOC-20100203493

PATIENT
  Age: 62 Year
  Sex: Female
  Weight: 109 kg

DRUGS (1)
  1. HALDOL [Suspect]
     Indication: HALLUCINATION
     Route: 042

REACTIONS (11)
  - ERYTHEMA [None]
  - FLUID RETENTION [None]
  - HYPERHIDROSIS [None]
  - MUSCULOSKELETAL STIFFNESS [None]
  - NASAL CONGESTION [None]
  - OEDEMA [None]
  - PARAESTHESIA [None]
  - PHOTOSENSITIVITY REACTION [None]
  - POOR PERIPHERAL CIRCULATION [None]
  - SKIN IRRITATION [None]
  - WEIGHT INCREASED [None]
